FAERS Safety Report 23796909 (Version 1)
Quarter: 2024Q2

REPORT INFORMATION
  Report Type: Spontaneous
  Country: NL (occurrence: NL)
  Receive Date: 20240430
  Receipt Date: 20240430
  Transmission Date: 20240716
  Serious: Yes (Other)
  Sender: FDA-Public Use
  Company Number: NL-LRB-00945320

PATIENT
  Age: 67 Year
  Sex: Female
  Weight: 85 kg

DRUGS (1)
  1. ESOMEPRAZOLE [Suspect]
     Active Substance: ESOMEPRAZOLE
     Indication: Dyspepsia
     Dosage: 1X A DAY
     Route: 065
     Dates: start: 20240128, end: 20240202

REACTIONS (8)
  - Arrhythmia [Recovering/Resolving]
  - Blood pressure increased [Recovering/Resolving]
  - Disturbance in attention [Recovering/Resolving]
  - Restlessness [Recovering/Resolving]
  - Brain fog [Recovering/Resolving]
  - Head discomfort [Recovering/Resolving]
  - Nausea [Recovering/Resolving]
  - Product substitution issue [Unknown]
